FAERS Safety Report 23423066 (Version 1)
Quarter: 2024Q1

REPORT INFORMATION
  Report Type: Report from Study
  Country: CA (occurrence: CA)
  Receive Date: 20240119
  Receipt Date: 20240119
  Transmission Date: 20240410
  Serious: Yes (Other)
  Sender: FDA-Public Use
  Company Number: CA-ABBVIE-5588651

PATIENT
  Sex: Female
  Weight: 76.2 kg

DRUGS (1)
  1. SKYRIZI [Suspect]
     Active Substance: RISANKIZUMAB-RZAA
     Indication: Crohn^s disease
     Route: 058
     Dates: start: 20230223

REACTIONS (6)
  - Intestinal anastomosis [Unknown]
  - Diarrhoea [Unknown]
  - Arthralgia [Unknown]
  - Calcinosis [Unknown]
  - Plantar fasciitis [Unknown]
  - Exostosis [Unknown]

NARRATIVE: CASE EVENT DATE: 20240111
